FAERS Safety Report 7357984-1 (Version None)
Quarter: 2011Q1

REPORT INFORMATION
  Report Type: 
  Country: None (occurrence: None)
  Receive Date: 20110317
  Receipt Date: 20110304
  Transmission Date: 20110831
  Serious: Yes (Other)
  Sender: FDA-Public Use
  Company Number: PHHY2010US69547

PATIENT
  Sex: Female

DRUGS (6)
  1. SYNTHROID [Concomitant]
  2. EXTAVIA [Suspect]
     Dosage: 0.25 MG, QOD
     Route: 058
  3. EXTAVIA [Suspect]
     Indication: MULTIPLE SCLEROSIS
     Dosage: 0.1875 MG, EVERY OTHER DAY
     Route: 058
     Dates: start: 20100925
  4. ADVIL LIQUI-GELS [Concomitant]
  5. PROVIGIL [Concomitant]
     Dosage: UNK UKN, UNK
  6. VYTORIN [Concomitant]

REACTIONS (11)
  - GAIT DISTURBANCE [None]
  - FEELING COLD [None]
  - OEDEMA [None]
  - ARTHRALGIA [None]
  - DYSARTHRIA [None]
  - OSTEOARTHRITIS [None]
  - FATIGUE [None]
  - THROAT IRRITATION [None]
  - JOINT SWELLING [None]
  - INFLUENZA [None]
  - RHINORRHOEA [None]
